FAERS Safety Report 17426930 (Version 1)
Quarter: 2020Q1

REPORT INFORMATION
  Report Type: Spontaneous
  Country: FR (occurrence: FR)
  Receive Date: 20200218
  Receipt Date: 20200218
  Transmission Date: 20200409
  Serious: Yes (Life-Threatening)
  Sender: FDA-Public Use
  Company Number: FR-TEVA-2020-FR-1187443

PATIENT
  Age: 70 Year
  Sex: Female
  Weight: 100 kg

DRUGS (14)
  1. STAGID 700 MG, COMPRIME SECABLE [Suspect]
     Active Substance: METFORMIN PAMOATE
     Indication: DIABETES MELLITUS
     Dosage: 2 DOSAGE FORMS
     Route: 048
     Dates: end: 20191218
  2. CANDESARTAN CILEXETIL. [Suspect]
     Active Substance: CANDESARTAN CILEXETIL
     Indication: HYPERTENSION
     Dosage: 16 MG PER DAY
     Route: 048
     Dates: end: 20191218
  3. FUROSEMIDE. [Suspect]
     Active Substance: FUROSEMIDE
     Indication: MYOCARDIAL ISCHAEMIA
     Dosage: 40 MG PER DAY
     Route: 048
     Dates: end: 20191218
  4. FEMARA [Concomitant]
     Active Substance: LETROZOLE
  5. LEVOTHYROX [Concomitant]
     Active Substance: LEVOTHYROXINE
  6. RABEPRAZOLE BASE [Concomitant]
     Active Substance: RABEPRAZOLE
  7. XULTOPHY 100/3.6 [Concomitant]
     Active Substance: INSULIN DEGLUDEC\LIRAGLUTIDE
  8. PAROXETINE. [Suspect]
     Active Substance: PAROXETINE
     Indication: DEPRESSION
     Dosage: 20 MG PER DAY
     Route: 048
     Dates: end: 20191218
  9. IPRATROPIUM BROMIDE\FENOTEROL HYDROBROMIDE [Suspect]
     Active Substance: FENOTEROL HYDROBROMIDE\IPRATROPIUM BROMIDE
     Indication: PRODUCT USED FOR UNKNOWN INDICATION
     Dosage: 3 DOSAGE FORMS
     Route: 055
     Dates: end: 20191218
  10. OXEOL [Suspect]
     Active Substance: BAMBUTEROL HYDROCHLORIDE
     Indication: PRODUCT USED FOR UNKNOWN INDICATION
     Route: 048
     Dates: end: 20191218
  11. HUMALOG [Concomitant]
     Active Substance: INSULIN LISPRO
  12. ZOPICLONE [Concomitant]
     Active Substance: ZOPICLONE
  13. ATORVASTATINE [Concomitant]
     Active Substance: ATORVASTATIN
  14. KARDEGIC [Concomitant]
     Active Substance: ASPIRIN DL-LYSINE

REACTIONS (3)
  - Lactic acidosis [Recovered/Resolved]
  - Hyperkalaemia [Recovered/Resolved]
  - Acute kidney injury [Recovering/Resolving]

NARRATIVE: CASE EVENT DATE: 20191218
